FAERS Safety Report 5223158-3 (Version None)
Quarter: 2007Q1

REPORT INFORMATION
  Report Type: 
  Country: None (occurrence: None)
  Receive Date: 20070129
  Receipt Date: 20070122
  Transmission Date: 20070707
  Serious: Yes (Other)
  Sender: FDA-Public Use
  Company Number: CN-PFIZER INC-2007006632

PATIENT
  Age: 3 Year
  Sex: Female
  Weight: 16 kg

DRUGS (2)
  1. SOLU-MEDROL [Suspect]
     Indication: RETINAL VASCULITIS
     Route: 042
     Dates: start: 20060601, end: 20060601
  2. ASCORBIC ACID [Concomitant]
     Route: 048

REACTIONS (3)
  - ARRHYTHMIA [None]
  - BODY TEMPERATURE DECREASED [None]
  - HYPERHIDROSIS [None]
